FAERS Safety Report 5630219-3 (Version None)
Quarter: 2008Q1

REPORT INFORMATION
  Report Type: 
  Country: None (occurrence: None)
  Receive Date: 20080219
  Receipt Date: 20080211
  Transmission Date: 20080703
  Serious: No
  Sender: FDA-Public Use
  Company Number: FR-ELI_LILLY_AND_COMPANY-FR200710002457

PATIENT
  Age: 48 Year
  Sex: Female

DRUGS (4)
  1. OLANZAPINE [Suspect]
     Indication: BIPOLAR DISORDER
     Dosage: 5 MG, DAILY (1/D)
     Route: 048
     Dates: start: 20070529, end: 20070628
  2. DEPAKOTE [Concomitant]
     Indication: BIPOLAR DISORDER
     Dosage: 1 G, DAILY (1/D)
     Route: 048
     Dates: start: 20070529
  3. ATERAX [Concomitant]
     Indication: ANXIETY
     Dosage: 100 MG, DAILY (1/D)
     Route: 048
     Dates: start: 20070529, end: 20071109
  4. EFFEXOR [Concomitant]
     Indication: BIPOLAR DISORDER
     Dosage: 100 MG, DAILY (1/D)
     Route: 048
     Dates: start: 20070529

REACTIONS (2)
  - LEUKOPENIA [None]
  - NEUTROPENIA [None]
